FAERS Safety Report 6575721-5 (Version None)
Quarter: 2010Q1

REPORT INFORMATION
  Report Type: 
  Country: None (occurrence: None)
  Receive Date: 20100208
  Receipt Date: 20100208
  Transmission Date: 20100710
  Serious: Yes (Death)
  Sender: FDA-Public Use
  Company Number: None

PATIENT
  Age: 88 Year
  Sex: Male
  Weight: 80.7403 kg

DRUGS (1)
  1. PLETAL [Suspect]
     Indication: POOR PERIPHERAL CIRCULATION
     Dosage: 100 MG TWO TIMES/DAY PO
     Route: 048
     Dates: start: 20090604, end: 20090730

REACTIONS (3)
  - CARDIAC ARREST [None]
  - LABELLED DRUG-DISEASE INTERACTION MEDICATION ERROR [None]
  - VENTRICULAR ARRHYTHMIA [None]
